FAERS Safety Report 16397118 (Version 2)
Quarter: 2019Q2

REPORT INFORMATION
  Report Type: Report from Study
  Country: US (occurrence: US)
  Receive Date: 20190606
  Receipt Date: 20190618
  Transmission Date: 20190711
  Serious: No
  Sender: FDA-Public Use
  Company Number: US-ROCHE-2330577

PATIENT
  Sex: Female

DRUGS (1)
  1. OCREVUS [Suspect]
     Active Substance: OCRELIZUMAB
     Indication: RELAPSING MULTIPLE SCLEROSIS
     Route: 065
     Dates: start: 20190329

REACTIONS (3)
  - Clonus [Not Recovered/Not Resolved]
  - Gastroenteritis viral [Recovered/Resolved]
  - Muscle spasticity [Not Recovered/Not Resolved]
